FAERS Safety Report 9483125 (Version 2)
Quarter: 2013Q3

REPORT INFORMATION
  Report Type: Spontaneous
  Country: US (occurrence: US)
  Receive Date: 20130828
  Receipt Date: 20130828
  Transmission Date: 20140515
  Serious: Yes (Hospitalization)
  Sender: FDA-Public Use
  Company Number: US-AMGEN-US106096

PATIENT
  Sex: Male

DRUGS (5)
  1. ENBREL [Suspect]
     Indication: RHEUMATOID ARTHRITIS
     Dosage: 25 MG, 2 TIMES/WK
     Route: 065
  2. METHOTREXATE [Suspect]
     Dosage: 30 MG, QWK
     Route: 058
  3. DICLOFENAC SODIUM [Suspect]
     Dosage: 50 MG, QID
  4. AZATHIOPRINE [Suspect]
     Dosage: 50 MG, TID
  5. FOLIC ACID [Suspect]
     Dosage: 4 MG, QD

REACTIONS (3)
  - Tracheal disorder [Unknown]
  - Staphylococcal infection [Unknown]
  - Sinusitis [Unknown]
